FAERS Safety Report 8829451 (Version 2)
Quarter: 2013Q2

REPORT INFORMATION
  Report Type: Report from Study
  Country: US (occurrence: US)
  Receive Date: 20121008
  Receipt Date: 20130409
  Transmission Date: 20140414
  Serious: Yes (Other)
  Sender: FDA-Public Use
  Company Number: US-PFIZER INC-2011242605

PATIENT
  Age: 52 Year
  Sex: Female

DRUGS (32)
  1. LYRICA [Suspect]
     Indication: FIBROMYALGIA
     Dosage: 100 MG, 3X/DAY
     Route: 048
  2. LYRICA [Suspect]
     Dosage: 50 MG, UNK
  3. NEURONTIN [Suspect]
     Dosage: 300 MG, UNK
  4. XANAX [Suspect]
     Dosage: 0.5 MG, 3X/DAY
     Route: 048
  5. NITROSTAT [Suspect]
     Dosage: 0.4 MG, EVERY 5 MINS AS NEEDED
     Route: 060
  6. ZYRTEC [Suspect]
     Dosage: 10 MG, 1X/DAY
     Route: 048
  7. BUSPAR [Concomitant]
     Dosage: 10 MG, UNK
  8. BUPAP [Concomitant]
     Dosage: 50-650 MG, TAKE 1 TAB 3X/DAY AS NEEDED
     Route: 048
  9. PROZAC [Concomitant]
     Dosage: 40 MG, 1X/DAILY
     Route: 048
  10. HYDRODIURIL [Concomitant]
     Dosage: 12.5 MG
  11. PRINZIDE [Concomitant]
     Dosage: 20-12.5 MG, 0.5 TABLETS DAILY
     Route: 048
  12. ZESTORETIC [Concomitant]
     Dosage: 20-12.5 MG, 0.5 TABLETS DAILY
     Route: 048
  13. KLONOPIN [Concomitant]
     Dosage: 1 MG, 2X/DAY AS NEEDED
     Route: 048
  14. BENTYL [Concomitant]
     Dosage: 20 MG, 3X/DAY AS NEEDED
     Route: 048
  15. NORCO [Concomitant]
     Dosage: 7.5-325 MG, 1 TABLET EVERY 4 (FOUR) HOURS AS NEEDED
     Route: 048
  16. HYTONE [Concomitant]
     Dosage: 1 %, 2X/DAY
     Route: 061
  17. MOTRIN [Concomitant]
     Indication: PAIN
     Dosage: 800 MG, 2X/DAY AS NEEDED
     Route: 048
  18. ADVIL [Concomitant]
     Indication: PAIN
     Dosage: 800 MG, 2X/DAY AS NEEDED
     Route: 048
  19. MIRALAX [Concomitant]
     Dosage: 17 G, DAILY AS NEEDED
     Route: 048
  20. ZOCOR [Concomitant]
     Dosage: 10 MG, 1 TABLET EVERY EVENING
     Route: 048
  21. AMBIEN [Concomitant]
     Dosage: 5 MG TABLET, 10 MG NIGHTLY AS NEEDED
     Route: 048
  22. INFLUENZA VACCINE [Concomitant]
     Dosage: UNK
     Dates: start: 20120901
  23. VITAMIN C [Concomitant]
     Dosage: 500 MG, 1X/DAY
     Route: 048
  24. FLEXERIL [Concomitant]
     Indication: MUSCLE SPASMS
     Dosage: 10 MG, 3X/DAY AS NEEDED
     Route: 048
  25. FERROUS SULFATE [Concomitant]
     Dosage: 325 MG, 2X/DAY
     Route: 048
  26. VASOTEC [Concomitant]
     Dosage: 20 MG, 1X/DAY
     Route: 048
  27. MICROZIDE [Concomitant]
     Dosage: 12.5 MG, 1X/DAY
     Route: 048
  28. POLY-IRON [Concomitant]
     Dosage: 150 MG, 2X/DAY
     Route: 048
  29. PRILOSEC [Concomitant]
     Dosage: 20 MG, 1X/DAY
     Route: 048
  30. K-DUR [Concomitant]
     Dosage: 20 MEQ, 1X/DAY, TAKE 1/2 TABLET
     Route: 048
  31. KLOR-CON [Concomitant]
     Dosage: 20 MEQ, 1X/DAY, TAKE 1/2 TABLET
     Route: 048
  32. ULTRAM [Concomitant]
     Indication: PAIN
     Dosage: 50 MG, TAKE 1 TABLET EVERY 6 (SIX) HOURS AS AS NEEDED
     Route: 048

REACTIONS (8)
  - Suicidal ideation [Unknown]
  - Bradycardia [Unknown]
  - Hypertension [Unknown]
  - Lower gastrointestinal haemorrhage [Unknown]
  - Rectal haemorrhage [Unknown]
  - Pain [Unknown]
  - Joint injury [Unknown]
  - Abdominal pain [Unknown]
